FAERS Safety Report 5927856-5 (Version None)
Quarter: 2008Q4

REPORT INFORMATION
  Report Type: 
  Country: None (occurrence: None)
  Receive Date: 20081023
  Receipt Date: 20081014
  Transmission Date: 20090506
  Serious: Yes (Hospitalization, Disabling)
  Sender: FDA-Public Use
  Company Number: FR-AMGEN-US314187

PATIENT
  Age: 42 Year
  Sex: Male

DRUGS (8)
  1. ENBREL [Suspect]
     Indication: ANKYLOSING SPONDYLITIS
     Dosage: UNKNOWN
     Route: 058
     Dates: start: 20030201, end: 20050408
  2. ENBREL [Suspect]
     Route: 058
     Dates: start: 20050404, end: 20050408
  3. HUMIRA [Suspect]
     Indication: ANKYLOSING SPONDYLITIS
     Dosage: UNKNOWN
     Dates: start: 20050601, end: 20060401
  4. METHOTREXATE [Suspect]
     Indication: ANKYLOSING SPONDYLITIS
     Dosage: UNKNOWN
     Dates: end: 20050301
  5. CHRONO-INDOCID [Concomitant]
     Indication: ANKYLOSING SPONDYLITIS
     Dosage: UNKNOWN
     Route: 048
     Dates: end: 20050301
  6. CHRONO-INDOCID [Concomitant]
     Dosage: UNKNOWN
     Route: 048
     Dates: start: 20050301
  7. SPECIAFOLDINE [Concomitant]
     Dosage: UNKNOWN
     Route: 048
  8. CORTANCYL [Concomitant]
     Dates: start: 20070501

REACTIONS (8)
  - CUPULOLITHIASIS [None]
  - DIZZINESS [None]
  - DYSPNOEA [None]
  - FATIGUE [None]
  - FEELING DRUNK [None]
  - MALAISE [None]
  - PARAESTHESIA [None]
  - VERTIGO [None]
